FAERS Safety Report 23175956 (Version 1)
Quarter: 2023Q4

REPORT INFORMATION
  Report Type: Spontaneous
  Country: JP (occurrence: None)
  Receive Date: 20231113
  Receipt Date: 20231113
  Transmission Date: 20240109
  Serious: Yes (Life-Threatening, Hospitalization, Other)
  Sender: FDA-Public Use
  Company Number: 2023A253968

PATIENT
  Age: 73 Year
  Sex: Male
  Weight: 43 kg

DRUGS (9)
  1. DAPAGLIFLOZIN [Suspect]
     Active Substance: DAPAGLIFLOZIN
     Indication: Diabetes mellitus
     Route: 048
  2. OPDIVO [Suspect]
     Active Substance: NIVOLUMAB
     Indication: Oesophageal carcinoma
     Dosage: DOSE UNKNOWN
     Route: 041
     Dates: start: 20230525
  3. YERVOY [Suspect]
     Active Substance: IPILIMUMAB
     Indication: Oesophageal carcinoma
     Dosage: DOSE UNKNOWN
     Route: 041
     Dates: start: 20230525
  4. FEBUXOSTAT [Concomitant]
     Active Substance: FEBUXOSTAT
     Route: 048
  5. ICOSAPENT ETHYL [Concomitant]
     Active Substance: ICOSAPENT ETHYL
     Route: 048
  6. URSODIOL [Concomitant]
     Active Substance: URSODIOL
     Route: 048
  7. VOGLIBOSE [Concomitant]
     Active Substance: VOGLIBOSE
     Route: 048
  8. LANDEL10_20 [Concomitant]
     Route: 048
  9. RYBELSUS [Concomitant]
     Active Substance: SEMAGLUTIDE
     Route: 048

REACTIONS (5)
  - Pneumonia [Recovering/Resolving]
  - Acquired tracheo-oesophageal fistula [Recovering/Resolving]
  - Pyrexia [Recovering/Resolving]
  - Cytokine release syndrome [Unknown]
  - Perforation [Unknown]

NARRATIVE: CASE EVENT DATE: 20230101
